FAERS Safety Report 7813031-6 (Version None)
Quarter: 2011Q4

REPORT INFORMATION
  Report Type: 
  Country: None (occurrence: None)
  Receive Date: 20111013
  Receipt Date: 20111005
  Transmission Date: 20120403
  Serious: Yes (Hospitalization)
  Sender: FDA-Public Use
  Company Number: FR-ABBOTT-11P-056-0861933-00

PATIENT
  Age: 11 Year
  Sex: Female

DRUGS (4)
  1. ZAVESCA [Concomitant]
     Indication: PRODUCT USED FOR UNKNOWN INDICATION
     Dates: start: 20100601, end: 20110701
  2. DEPAKENE [Suspect]
     Indication: EPILEPSY
     Route: 048
     Dates: start: 20110101, end: 20110826
  3. LAMOTRIGINE [Suspect]
     Indication: EPILEPSY
     Route: 048
     Dates: start: 20100301, end: 20110826
  4. ARTANE [Suspect]
     Indication: DYSTONIA
     Route: 048
     Dates: start: 20110101, end: 20110826

REACTIONS (6)
  - COAGULATION FACTOR V LEVEL DECREASED [None]
  - COAGULATION FACTOR VII LEVEL DECREASED [None]
  - NEUTROPENIA [None]
  - ACTIVATED PARTIAL THROMBOPLASTIN TIME PROLONGED [None]
  - THROMBOCYTOPENIA [None]
  - PROTHROMBIN TIME RATIO DECREASED [None]
